FAERS Safety Report 15677222 (Version 2)
Quarter: 2019Q1

REPORT INFORMATION
  Report Type: Report from Study
  Country: JP (occurrence: JP)
  Receive Date: 20181130
  Receipt Date: 20190104
  Transmission Date: 20190417
  Serious: Yes (Death)
  Sender: FDA-Public Use
  Company Number: JP-PFIZER INC-2018424758

PATIENT
  Age: 73 Year
  Sex: Male
  Weight: 65 kg

DRUGS (15)
  1. LORLATINIB [Suspect]
     Active Substance: LORLATINIB
     Indication: LUNG NEOPLASM MALIGNANT
     Dosage: 100 MG, DAILY
     Route: 048
     Dates: start: 20180117, end: 20180507
  2. MAGNESIUM OXIDE. [Concomitant]
     Active Substance: MAGNESIUM OXIDE
     Indication: CONSTIPATION
     Dosage: 500 MG, AS NEEDED
     Route: 048
     Dates: start: 20180123
  3. DIMEMORFAN [Concomitant]
     Active Substance: DIMEMORFAN
     Indication: COUGH
     Dosage: 10 MG, AS NEEDED
     Route: 048
     Dates: start: 20180131
  4. LUBIPROSTONE [Concomitant]
     Active Substance: LUBIPROSTONE
     Indication: CONSTIPATION
     Dosage: 24 UG, 2X/DAY
     Route: 048
     Dates: start: 2016
  5. GLIMEPIRIDE. [Concomitant]
     Active Substance: GLIMEPIRIDE
     Indication: DIABETES MELLITUS
     Dosage: 1 MG, 1X/DAY
     Route: 048
     Dates: start: 20180301
  6. CARBOCISTEINE [Concomitant]
     Active Substance: CARBOCYSTEINE
     Indication: BRONCHITIS
     Dosage: 500 MG, 3X/DAY
     Route: 048
     Dates: start: 20180228
  7. VILDAGLIPTIN [Concomitant]
     Active Substance: VILDAGLIPTIN
     Indication: DIABETES MELLITUS
     Dosage: 100 MG, 2X/DAY
     Route: 048
     Dates: start: 2015
  8. BIO-THREE [Concomitant]
     Active Substance: HERBALS
     Indication: CONSTIPATION PROPHYLAXIS
     Dosage: UNK UNK, 3X/DAY
     Route: 048
     Dates: start: 2007
  9. AMLODIPINE [Concomitant]
     Active Substance: AMLODIPINE BESYLATE
     Indication: HYPERTENSION
     Dosage: 5 MG, DAILY
     Route: 048
     Dates: start: 2007
  10. ROSUVASTATIN. [Concomitant]
     Active Substance: ROSUVASTATIN
     Indication: HYPERLIPIDAEMIA
     Dosage: 15 MG, 1X/DAY
     Route: 048
     Dates: start: 20180131
  11. METFORMIN [Concomitant]
     Active Substance: METFORMIN HYDROCHLORIDE
     Indication: DIABETES MELLITUS
     Dosage: 1500 MG, 3X/DAY
     Route: 048
     Dates: start: 2015
  12. DOXAZOSIN [Concomitant]
     Active Substance: DOXAZOSIN\DOXAZOSIN MESYLATE
     Indication: HYPERTENSION
     Dosage: 1 MG, DAILY
     Route: 048
     Dates: start: 2007
  13. ESOMEPRAZOLE. [Concomitant]
     Active Substance: ESOMEPRAZOLE MAGNESIUM
     Indication: PROPHYLAXIS
     Dosage: 20 MG, DAILY
     Route: 048
     Dates: start: 2007
  14. VALSARTAN. [Concomitant]
     Active Substance: VALSARTAN
     Indication: HYPERLIPIDAEMIA
     Dosage: 80 MG, 2X/DAY
     Route: 048
     Dates: start: 2007
  15. FERROUS FUMARATE [Concomitant]
     Active Substance: FERROUS FUMARATE
     Indication: ANAEMIA PROPHYLAXIS
     Dosage: 100 MG, 1X/DAY
     Route: 048
     Dates: start: 20180301

REACTIONS (1)
  - Cardiac failure acute [Fatal]

NARRATIVE: CASE EVENT DATE: 20180704
